FAERS Safety Report 6865062-0 (Version None)
Quarter: 2010Q3

REPORT INFORMATION
  Report Type: 
  Country: None (occurrence: None)
  Receive Date: 20100721
  Receipt Date: 20080411
  Transmission Date: 20110219
  Serious: No
  Sender: FDA-Public Use
  Company Number: US-PFIZER INC-2008032344

PATIENT
  Sex: Female
  Weight: 57.2 kg

DRUGS (4)
  1. CHANTIX [Suspect]
     Indication: SMOKING CESSATION THERAPY
     Dates: start: 20080404
  2. CLONAZEPAM [Concomitant]
  3. VITAMIN B-12 [Concomitant]
  4. LOVENOX [Concomitant]

REACTIONS (4)
  - FEELING ABNORMAL [None]
  - HYPERHIDROSIS [None]
  - MALAISE [None]
  - NAUSEA [None]
